FAERS Safety Report 4731789-X (Version None)
Quarter: 2005Q3

REPORT INFORMATION
  Report Type: 
  Country: None (occurrence: None)
  Receive Date: 20050802
  Receipt Date: 20050726
  Transmission Date: 20060218
  Serious: Yes (Hospitalization)
  Sender: FDA-Public Use
  Company Number: US-BRISTOL-MYERS SQUIBB COMPANY-13052477

PATIENT
  Age: 42 Year
  Sex: Male
  Weight: 76 kg

DRUGS (4)
  1. CETUXIMAB [Suspect]
     Indication: SQUAMOUS CELL CARCINOMA
     Dosage: START DATE 24-MAR-05 (400 MG/M2, THEN WEEKLY AT 250 MG/M2).
     Dates: start: 20050712, end: 20050712
  2. CARBOPLATIN [Suspect]
     Indication: SQUAMOUS CELL CARCINOMA
     Dosage: WEEKLY THERAPY AT AUC=1. THERAPY DATES 21-APR-05 TO 07-JUN-05.
     Dates: start: 20050607, end: 20050607
  3. TAXOL [Suspect]
     Indication: SQUAMOUS CELL CARCINOMA
     Dosage: THERAPY DATES 21-APR-05 TO 07-JUN-05. 84 MG X 7; 79 MG X 1.
     Dates: start: 20050607, end: 20050607
  4. RADIATION THERAPY [Suspect]
     Indication: SQUAMOUS CELL CARCINOMA
     Dosage: 8 WEEKS DAILY RADIATION.
     Dates: start: 20050101, end: 20050101

REACTIONS (3)
  - CATHETER RELATED INFECTION [None]
  - NEUTROPENIA [None]
  - PNEUMONIA [None]
